FAERS Safety Report 4596655-1 (Version None)
Quarter: 2005Q1

REPORT INFORMATION
  Report Type: 
  Country: None (occurrence: None)
  Receive Date: 20050228
  Receipt Date: 20040517
  Transmission Date: 20050727
  Serious: Yes (Hospitalization)
  Sender: FDA-Public Use
  Company Number: 8020

PATIENT
  Age: 84 Year
  Sex: Male

DRUGS (6)
  1. METHOTREXATE [Suspect]
     Indication: RHEUMATOID ARTHRITIS
     Dosage: 10 MG WEEKLY PO
     Route: 048
     Dates: start: 20040223, end: 20040427
  2. WARFARIN SODIUM [Concomitant]
  3. ROFECOXIB [Concomitant]
  4. METFORMIN [Concomitant]
  5. GLICLAZIDE [Concomitant]
  6. FOLIC ACID [Concomitant]

REACTIONS (3)
  - BLOOD SODIUM DECREASED [None]
  - CONFUSIONAL STATE [None]
  - SOMNOLENCE [None]
